FAERS Safety Report 8612611-8 (Version None)
Quarter: 2012Q3

REPORT INFORMATION
  Report Type: 
  Country: None (occurrence: None)
  Receive Date: 20120822
  Receipt Date: 20110912
  Transmission Date: 20120928
  Serious: No
  Sender: FDA-Public Use
  Company Number: US-ASTRAZENECA-2011SE54603

PATIENT
  Age: 69 Year
  Sex: Male

DRUGS (3)
  1. SYMBICORT [Suspect]
     Indication: EMPHYSEMA
     Dosage: 160 TWO TIMES A DAY
     Route: 055
     Dates: start: 20090101
  2. SYMBICORT [Suspect]
     Indication: ASTHMA
     Dosage: 160 TWO TIMES A DAY
     Route: 055
     Dates: start: 20090101
  3. SYMBICORT [Suspect]
     Indication: DYSPNOEA
     Dosage: 160 TWO TIMES A DAY
     Route: 055
     Dates: start: 20090101

REACTIONS (6)
  - DYSPNOEA [None]
  - THROAT IRRITATION [None]
  - PARAESTHESIA [None]
  - INCREASED BRONCHIAL SECRETION [None]
  - HYPOAESTHESIA [None]
  - OROPHARYNGEAL PAIN [None]
